FAERS Safety Report 6942167-7 (Version None)
Quarter: 2010Q3

REPORT INFORMATION
  Report Type: 
  Country: None (occurrence: None)
  Receive Date: 20100826
  Receipt Date: 20100726
  Transmission Date: 20110219
  Serious: No
  Sender: FDA-Public Use
  Company Number: US-BAYER-201018887BCC

PATIENT
  Age: 86 Year
  Sex: Female
  Weight: 61 kg

DRUGS (13)
  1. ALEVE [Suspect]
     Indication: ARTHRALGIA
     Dosage: TOTAL DAILY DOSE: 220 MG  UNIT DOSE: 220 MG
     Route: 048
     Dates: start: 20100501
  2. BAYER BACK + BODY ASPIRIN [Suspect]
     Indication: ARTHRALGIA
     Dosage: TOTAL DAILY DOSE: 1 DF  UNIT DOSE: 1 DF
     Route: 048
     Dates: start: 20060101
  3. LEVOTHYROXINE [Concomitant]
     Route: 065
  4. BENACAR [Concomitant]
     Route: 065
  5. NEXIUM [Concomitant]
     Route: 065
  6. NATURE'S OWN WOMEN'S OVER 50 [Concomitant]
     Route: 065
  7. VITAMIN B-12 [Concomitant]
     Route: 065
  8. POTASSIUM [Concomitant]
     Route: 065
  9. LASIX [Concomitant]
     Route: 065
  10. MAGNESIUM [Concomitant]
     Route: 065
  11. GIN SOAKED RAISINS [Concomitant]
     Route: 065
  12. RESBERATROL [Concomitant]
     Route: 065
  13. ENERGY CAPS [Concomitant]
     Route: 065

REACTIONS (4)
  - ABDOMINAL DISTENSION [None]
  - ARTHRALGIA [None]
  - CONTUSION [None]
  - OEDEMA PERIPHERAL [None]
